FAERS Safety Report 4949272-5 (Version None)
Quarter: 2006Q1

REPORT INFORMATION
  Report Type: 
  Country: None (occurrence: None)
  Receive Date: 20060315
  Receipt Date: 20060303
  Transmission Date: 20060701
  Serious: Yes (Other)
  Sender: FDA-Public Use
  Company Number: 2006033348

PATIENT
  Age: 60 Year
  Sex: Male
  Weight: 89.3586 kg

DRUGS (12)
  1. VIAGRA [Suspect]
     Indication: ERECTILE DYSFUNCTION
     Dosage: (25 MG)
     Dates: start: 20040101, end: 20040101
  2. ACCUPRIL [Concomitant]
  3. METFORMIN HCL [Concomitant]
  4. ISOSORBIDE (ISOSORBIDE) [Concomitant]
  5. TAMSULOSIN HCL [Concomitant]
  6. NAPROXEN [Concomitant]
  7. LOVASTATIN [Concomitant]
  8. RANITIDINE [Concomitant]
  9. AVANDIA [Concomitant]
  10. PLAVIX [Concomitant]
  11. SINGULAIR [Concomitant]
  12. NITROGLYCERIN [Concomitant]

REACTIONS (3)
  - CARDIAC DISORDER [None]
  - DRUG INEFFECTIVE [None]
  - STENT PLACEMENT [None]
